FAERS Safety Report 7291397-6 (Version None)
Quarter: 2011Q1

REPORT INFORMATION
  Report Type: 
  Country: None (occurrence: None)
  Receive Date: 20110214
  Receipt Date: 20110203
  Transmission Date: 20110831
  Serious: Yes (Death, Hospitalization)
  Sender: FDA-Public Use
  Company Number: B0698444A

PATIENT
  Sex: Female
  Weight: 53 kg

DRUGS (54)
  1. FUNGIZONE [Concomitant]
     Dosage: 60ML PER DAY
     Route: 002
     Dates: start: 20080117, end: 20080323
  2. MEYLON [Concomitant]
     Dosage: 80ML PER DAY
     Route: 042
     Dates: start: 20080121, end: 20080122
  3. PROGRAF [Concomitant]
     Dosage: .35ML PER DAY
     Route: 042
     Dates: start: 20080123, end: 20080314
  4. ADONA (AC-17) [Concomitant]
     Dosage: 20ML PER DAY
     Dates: start: 20080216, end: 20080216
  5. SOLDEM 3AG [Concomitant]
     Route: 042
     Dates: start: 20080204, end: 20080214
  6. APRICOT KERNEL WATER [Concomitant]
     Dosage: 24ML PER DAY
     Route: 048
     Dates: start: 20080122, end: 20080128
  7. GASTER [Concomitant]
     Dosage: 20MG PER DAY
     Route: 048
     Dates: start: 20080111, end: 20080316
  8. URSO 250 [Concomitant]
     Dosage: 600MG PER DAY
     Route: 048
     Dates: start: 20080117, end: 20080126
  9. CODEINE SULFATE [Concomitant]
     Dosage: 20MG PER DAY
     Route: 048
     Dates: start: 20080123, end: 20080125
  10. XYLOCAINE [Concomitant]
     Route: 061
     Dates: start: 20080204, end: 20080214
  11. HACHIAZULE [Concomitant]
     Route: 002
     Dates: start: 20080204, end: 20080216
  12. MORPHINE HYDROCHLORIDE [Concomitant]
     Dosage: 50ML PER DAY
     Route: 048
     Dates: start: 20080206, end: 20080208
  13. PENTAZOCINE LACTATE [Concomitant]
     Dosage: 15MG PER DAY
     Dates: start: 20080126, end: 20080126
  14. ELEMENMIC [Concomitant]
     Dosage: 2ML PER DAY
     Route: 042
     Dates: start: 20080129, end: 20080314
  15. FUNGUARD [Concomitant]
     Dosage: 150MG PER DAY
     Route: 042
     Dates: start: 20080201, end: 20080216
  16. CALCIUM CHLORIDE [Concomitant]
     Dosage: 20ML PER DAY
     Dates: start: 20080214, end: 20080215
  17. SOLDEM [Concomitant]
     Dosage: 200ML PER DAY
     Dates: start: 20080129, end: 20080204
  18. PRIMPERAN TAB [Concomitant]
     Dosage: 5MG PER DAY
     Route: 048
     Dates: start: 20080125, end: 20080129
  19. KYTRIL [Concomitant]
     Dosage: 3ML PER DAY
     Route: 042
     Dates: start: 20080117, end: 20080122
  20. ATARAX [Concomitant]
     Dosage: 1ML PER DAY
     Dates: start: 20080122, end: 20080206
  21. MULTI-VITAMIN [Concomitant]
     Dosage: 2ML PER DAY
     Route: 042
     Dates: start: 20080129, end: 20080314
  22. MINOMYCIN [Concomitant]
     Dosage: 200MG PER DAY
     Route: 042
     Dates: start: 20080201, end: 20080204
  23. NEO-MINOPHAGEN-C [Concomitant]
     Dosage: 40ML PER DAY
     Route: 042
     Dates: start: 20080212, end: 20080216
  24. CONCLYTE-PK [Concomitant]
     Dosage: 20ML PER DAY
     Dates: start: 20080214, end: 20080215
  25. TACROLIMUS [Concomitant]
     Indication: IMMUNOSUPPRESSION
     Dosage: 1.5MG PER DAY
     Route: 065
     Dates: start: 20080123, end: 20080313
  26. ISODINE GARGLE [Concomitant]
     Route: 002
     Dates: start: 20080117, end: 20080207
  27. ALLELOCK [Concomitant]
     Dosage: 5MG PER DAY
     Route: 048
     Dates: start: 20080216, end: 20080218
  28. SOLU-CORTEF [Concomitant]
     Dosage: 100MG PER DAY
     Dates: start: 20080122, end: 20080313
  29. FLURBIPROFEN [Concomitant]
     Dosage: 5ML PER DAY
     Route: 042
     Dates: start: 20080204, end: 20080213
  30. FENTANYL [Concomitant]
     Dosage: 6ML PER DAY
     Route: 042
     Dates: start: 20080207, end: 20080212
  31. DEPAS [Concomitant]
     Dosage: 1MG PER DAY
     Route: 048
     Dates: start: 20080111, end: 20080316
  32. DIFLUCAN [Concomitant]
     Dosage: 200MG PER DAY
     Route: 048
     Dates: start: 20080117, end: 20080127
  33. POLYMYXIN-B-SULFATE [Concomitant]
     Dosage: 3IUAX PER DAY
     Route: 048
     Dates: start: 20080117, end: 20080126
  34. PROCHLORPERAZINE [Concomitant]
     Dosage: 20MG PER DAY
     Route: 048
     Dates: start: 20080206, end: 20080208
  35. IMMUNE GLOBULIN NOS [Concomitant]
     Dosage: 5000MG PER DAY
     Route: 042
     Dates: start: 20080117, end: 20080207
  36. ORGARAN [Concomitant]
     Dosage: 1.25IU3 PER DAY
     Route: 042
     Dates: start: 20080125, end: 20080216
  37. CONCLYTE-MG [Concomitant]
     Dosage: 20ML PER DAY
     Dates: start: 20080214, end: 20080215
  38. GRAN [Suspect]
     Dates: start: 20080125, end: 20080214
  39. CELLCEPT [Concomitant]
     Indication: IMMUNOSUPPRESSION
     Dosage: 2000MG PER DAY
     Route: 048
     Dates: start: 20080123, end: 20080215
  40. ALFAROL [Concomitant]
     Dosage: 1MCG PER DAY
     Route: 048
     Dates: start: 20080111, end: 20080126
  41. ZOVIRAX [Concomitant]
     Dosage: 1000MG PER DAY
     Route: 048
     Dates: start: 20080117, end: 20080130
  42. GASTER [Concomitant]
     Dosage: 20MG PER DAY
     Route: 042
     Dates: start: 20080127, end: 20080216
  43. MORPHINE HYDROCHLORIDE [Concomitant]
     Dosage: 5ML PER DAY
     Dates: start: 20080212, end: 20080216
  44. FLUDARA [Suspect]
     Indication: CORD BLOOD TRANSPLANT THERAPY
     Dosage: 25MGM2 PER DAY
     Route: 065
     Dates: start: 20080117, end: 20080121
  45. ASPARA-CA [Concomitant]
     Dosage: 800MG PER DAY
     Route: 048
     Dates: start: 20080111, end: 20080130
  46. AMOBAN [Concomitant]
     Dosage: 7.5MG PER DAY
     Route: 048
     Dates: start: 20080116, end: 20080317
  47. EURAX [Concomitant]
     Route: 061
     Dates: start: 20080215, end: 20080215
  48. HAPTOGLOBIN [Concomitant]
     Dosage: 4IU3 PER DAY
     Route: 042
     Dates: start: 20080124, end: 20080124
  49. PRIMPERAN TAB [Concomitant]
     Dosage: 2ML PER DAY
     Dates: start: 20080126, end: 20080202
  50. CARBENIN [Concomitant]
     Dosage: 2G PER DAY
     Route: 042
     Dates: start: 20080126, end: 20080216
  51. ALKERAN [Suspect]
     Indication: CORD BLOOD TRANSPLANT THERAPY
     Dosage: 80MGM2 PER DAY
     Route: 042
     Dates: start: 20080122, end: 20080122
  52. BARACLUDE [Concomitant]
     Dosage: .5MG PER DAY
     Route: 048
     Dates: start: 20080111, end: 20080323
  53. WHITE PETROLATUM [Concomitant]
     Route: 061
     Dates: start: 20080122, end: 20080122
  54. MUCOSOLVAN [Concomitant]
     Dosage: 45MG PER DAY
     Route: 048
     Dates: start: 20080122, end: 20080212

REACTIONS (2)
  - PULMONARY HAEMORRHAGE [None]
  - SEPSIS [None]
